FAERS Safety Report 5587485-2 (Version None)
Quarter: 2007Q4

REPORT INFORMATION
  Report Type: 
  Country: None (occurrence: None)
  Receive Date: 20071207
  Receipt Date: 20070721
  Transmission Date: 20080405
  Serious: Yes (Other)
  Sender: FDA-Public Use
  Company Number: 2007047324

PATIENT
  Age: 26 Year
  Sex: Male
  Weight: 65.8 kg

DRUGS (6)
  1. VIAGRA [Suspect]
     Dosage: ORAL
     Route: 048
     Dates: start: 20070503
  2. ANTIEPILEPTICS (ANTIPEPILEPTICS) [Concomitant]
  3. REGLAN [Concomitant]
  4. LAMICTAL [Concomitant]
  5. ZONEGRAN [Concomitant]
     Dosage: ORAL
     Route: 048
     Dates: start: 20070503
  6. CLONAZEPAM [Concomitant]

REACTIONS (1)
  - CONVULSION [None]
